FAERS Safety Report 16254850 (Version 1)
Quarter: 2019Q2

REPORT INFORMATION
  Report Type: Report from Study
  Country: DE (occurrence: DE)
  Receive Date: 20190430
  Receipt Date: 20190430
  Transmission Date: 20190711
  Serious: Yes (Other)
  Sender: FDA-Public Use
  Company Number: PHHY2019DE098351

PATIENT
  Sex: Male
  Weight: 97 kg

DRUGS (15)
  1. COSENTYX [Suspect]
     Active Substance: SECUKINUMAB
     Dosage: 150 MG, ONCE/SINGLE (PRE-FILLED SYRINGE)
     Route: 065
     Dates: start: 20160920
  2. COSENTYX [Suspect]
     Active Substance: SECUKINUMAB
     Dosage: 300 MG, ONCE/SINGLE (PRE-FILLED SYRINGE)
     Route: 065
     Dates: start: 20170511
  3. COSENTYX [Suspect]
     Active Substance: SECUKINUMAB
     Dosage: 300 MG, ONCE/SINGLE (PRE-FILLED SYRINGE)
     Route: 065
     Dates: start: 20170611
  4. COSENTYX [Suspect]
     Active Substance: SECUKINUMAB
     Indication: PSORIATIC ARTHROPATHY
     Dosage: 150 MG, ONCE/SINGLE (PRE-FILLED SYRINGE)
     Route: 065
     Dates: start: 20160913
  5. TORASEMIDE [Concomitant]
     Active Substance: TORSEMIDE
     Indication: OEDEMA
     Dosage: 200 MG, ONCE/SINGLE
     Route: 048
  6. COSENTYX [Suspect]
     Active Substance: SECUKINUMAB
     Dosage: 150 MG, ONCE/SINGLE (PRE-FILLED SYRINGE)
     Route: 065
     Dates: start: 20161004
  7. COSENTYX [Suspect]
     Active Substance: SECUKINUMAB
     Dosage: 300 MG, ONCE/SINGLE (PRE-FILLED SYRINGE)
     Route: 065
     Dates: start: 20170211
  8. COSENTYX [Suspect]
     Active Substance: SECUKINUMAB
     Dosage: 150 MG, ONCE/SINGLE (PRE-FILLED SYRINGE)
     Route: 065
     Dates: start: 20161011
  9. COSENTYX [Suspect]
     Active Substance: SECUKINUMAB
     Dosage: 150 MG, ONCE/SINGLE (PRE-FILLED SYRINGE)
     Route: 065
     Dates: start: 20170111
  10. COSENTYX [Suspect]
     Active Substance: SECUKINUMAB
     Dosage: 300 MG, ONCE/SINGLE (PRE-FILLED SYRINGE)
     Route: 065
     Dates: start: 20170311
  11. DEKRISTOL [Concomitant]
     Active Substance: CHOLECALCIFEROL
     Indication: VITAMIN SUPPLEMENTATION
     Dosage: 20000 IU, QMO
     Route: 048
  12. COSENTYX [Suspect]
     Active Substance: SECUKINUMAB
     Dosage: 150 MG, ONCE/SINGLE (PRE-FILLED SYRINGE)
     Route: 065
     Dates: start: 20160927
  13. COSENTYX [Suspect]
     Active Substance: SECUKINUMAB
     Dosage: 150 MG, ONCE/SINGLE (PRE-FILLED SYRINGE)
     Route: 065
     Dates: start: 20161111
  14. COSENTYX [Suspect]
     Active Substance: SECUKINUMAB
     Dosage: 150 MG, ONCE/SINGLE (PRE-FILLED SYRINGE)
     Route: 065
     Dates: start: 20161211
  15. COSENTYX [Suspect]
     Active Substance: SECUKINUMAB
     Dosage: 300 MG, ONCE/SINGLE (PRE-FILLED SYRINGE)
     Route: 065
     Dates: start: 20170411

REACTIONS (2)
  - Gastroenteritis clostridial [Recovered/Resolved]
  - Pulmonary oedema [Recovered/Resolved]

NARRATIVE: CASE EVENT DATE: 20170215
